FAERS Safety Report 7563279-3 (Version None)
Quarter: 2011Q2

REPORT INFORMATION
  Report Type: 
  Country: None (occurrence: None)
  Receive Date: 20110622
  Receipt Date: 20110614
  Transmission Date: 20111010
  Serious: Yes (Hospitalization)
  Sender: FDA-Public Use
  Company Number: FR-B.I. PHARMACEUTICALS,INC./RIDGEFIELD-2011-FF-00578FF

PATIENT
  Sex: Male

DRUGS (4)
  1. DIURETIC [Concomitant]
  2. MICARDIS [Suspect]
     Indication: HYPERTENSION
     Dosage: 40 MG
     Route: 048
     Dates: start: 20110119, end: 20110324
  3. CORDARONE [Suspect]
     Indication: ATRIAL FIBRILLATION
     Route: 048
     Dates: start: 20110119, end: 20110324
  4. EZETIMIBE [Suspect]
     Indication: DYSLIPIDAEMIA
     Dosage: 10 MG /40 MG
     Route: 048
     Dates: start: 20110119, end: 20110324

REACTIONS (6)
  - RHABDOMYOLYSIS [None]
  - FALL [None]
  - CARDIAC FAILURE [None]
  - OEDEMA PERIPHERAL [None]
  - IMMOBILISATION PROLONGED [None]
  - RENAL FAILURE ACUTE [None]
